FAERS Safety Report 6683259-X (Version None)
Quarter: 2010Q2

REPORT INFORMATION
  Report Type: 
  Country: None (occurrence: None)
  Receive Date: 20100415
  Receipt Date: 20100409
  Transmission Date: 20101027
  Serious: Yes (Hospitalization)
  Sender: FDA-Public Use
  Company Number: PL-JNJFOC-20100207523

PATIENT
  Sex: Male
  Weight: 77 kg

DRUGS (18)
  1. GOLIMUMAB [Suspect]
     Indication: RHEUMATOID ARTHRITIS
     Route: 058
  2. GOLIMUMAB [Suspect]
     Route: 058
  3. GOLIMUMAB [Suspect]
     Route: 058
  4. GOLIMUMAB [Suspect]
     Route: 058
  5. PLACEBO [Suspect]
     Indication: RHEUMATOID ARTHRITIS
     Route: 058
  6. METHOTREXATE [Suspect]
     Indication: RHEUMATOID ARTHRITIS
     Route: 048
  7. METHOTREXATE [Suspect]
     Route: 048
  8. METHOTREXATE [Suspect]
     Route: 048
  9. METHOTREXATE [Suspect]
     Route: 048
  10. METHOTREXATE [Suspect]
     Route: 048
  11. METHOTREXATE [Suspect]
     Route: 048
  12. METHOTREXATE [Suspect]
     Route: 048
  13. METHOTREXATE [Concomitant]
     Route: 048
  14. BISOPROLOL [Concomitant]
     Route: 048
  15. PRAZOLE [Concomitant]
     Route: 048
  16. ACIDUM FOLICUM [Concomitant]
     Route: 048
  17. DICLOFENAC SODIUM [Concomitant]
     Route: 048
  18. ENCORTON [Concomitant]
     Route: 048

REACTIONS (1)
  - PNEUMONIA [None]
